FAERS Safety Report 7008178-0 (Version None)
Quarter: 2010Q3

REPORT INFORMATION
  Report Type: 
  Country: None (occurrence: None)
  Receive Date: 20100922
  Receipt Date: 20100909
  Transmission Date: 20110219
  Serious: Yes (Hospitalization)
  Sender: FDA-Public Use
  Company Number: IT-ELI_LILLY_AND_COMPANY-IT201009002355

PATIENT
  Sex: Female

DRUGS (12)
  1. GEMZAR [Suspect]
     Indication: LUNG NEOPLASM MALIGNANT
     Dosage: 1619 MG/CYCLE
     Route: 042
     Dates: start: 20090903, end: 20091008
  2. CISPLATIN [Concomitant]
     Indication: LUNG NEOPLASM MALIGNANT
     Dosage: 64.75 MG/CYCLE, UNK
     Route: 042
     Dates: start: 20090903, end: 20091002
  3. GRANULOKINE [Concomitant]
     Indication: NEUTROPENIA
     Dosage: 30 UI IN MILLIONS, UNK
     Route: 058
     Dates: start: 20090826, end: 20091029
  4. EPREX [Concomitant]
     Indication: ANAEMIA
     Dosage: 40 UI IN THOUSANDS, UNK
     Route: 058
     Dates: start: 20090817, end: 20091022
  5. ARTOTEC [Concomitant]
     Indication: BONE PAIN
     Dosage: 75 MG, UNK
     Route: 048
     Dates: start: 20090924, end: 20091104
  6. LEXOTAN [Concomitant]
     Indication: ANXIETY
     Dosage: 20 DROPS, OTHER
     Route: 048
     Dates: start: 20091009, end: 20091104
  7. TRIATEC HCT [Concomitant]
     Indication: ARTERIAL DISORDER
     Route: 048
     Dates: start: 20090826, end: 20091029
  8. ZOFRAN [Concomitant]
     Indication: NAUSEA
     Dosage: 8 MG, UNK
     Route: 042
     Dates: start: 20090903, end: 20091008
  9. DECADRON [Concomitant]
     Indication: NAUSEA
     Dosage: 20 MG, UNK
     Route: 042
     Dates: start: 20090903, end: 20091008
  10. TAD [Concomitant]
     Dosage: 2266 MG, UNK
     Route: 042
     Dates: start: 20090903, end: 20091002
  11. URBASON /00049602/ [Concomitant]
     Route: 042
  12. DOBETIN [Concomitant]
     Route: 030

REACTIONS (1)
  - HAEMOLYTIC ANAEMIA [None]
